FAERS Safety Report 18236280 (Version 2)
Quarter: 2020Q3

REPORT INFORMATION
  Report Type: Spontaneous
  Country: IN (occurrence: IN)
  Receive Date: 20200906
  Receipt Date: 20200929
  Transmission Date: 20201103
  Serious: Yes (Death, Other)
  Sender: FDA-Public Use
  Company Number: IN-PFIZER INC-2020341327

PATIENT
  Age: 56 Year
  Sex: Female

DRUGS (1)
  1. PALBACE [Suspect]
     Active Substance: PALBOCICLIB
     Indication: BREAST CANCER METASTATIC
     Dosage: 125 MG, CYCLIC (ONCE A DAY)
     Route: 048
     Dates: start: 20181113

REACTIONS (3)
  - Cardiac arrest [Fatal]
  - Neoplasm progression [Fatal]
  - Infection [Unknown]
